FAERS Safety Report 24086519 (Version 3)
Quarter: 2024Q4

REPORT INFORMATION
  Report Type: Spontaneous
  Country: JP (occurrence: JP)
  Receive Date: 20240713
  Receipt Date: 20241127
  Transmission Date: 20250115
  Serious: Yes (Death, Hospitalization, Other)
  Sender: AMGEN
  Company Number: JP-TAKEDA-2024TJP010270

PATIENT
  Age: 70 Year
  Sex: Male
  Weight: 63 kg

DRUGS (5)
  1. VECTIBIX [Suspect]
     Active Substance: PANITUMUMAB
     Indication: Rectal cancer
     Dosage: 360 MILLIGRAM
     Route: 065
     Dates: start: 20240502, end: 20240502
  2. VECTIBIX [Suspect]
     Active Substance: PANITUMUMAB
     Dosage: 365 MILLIGRAM
     Route: 065
     Dates: start: 20240516, end: 20240516
  3. VECTIBIX [Suspect]
     Active Substance: PANITUMUMAB
     Dosage: 367.2 MILLIGRAM
     Route: 065
     Dates: start: 20240530, end: 20240530
  4. VECTIBIX [Suspect]
     Active Substance: PANITUMUMAB
     Dosage: 380 MILLIGRAM
     Route: 065
     Dates: start: 20240627, end: 20240627
  5. IRINOTECAN HYDROCHLORIDE [Suspect]
     Active Substance: IRINOTECAN HYDROCHLORIDE
     Indication: Product used for unknown indication
     Dosage: 125 MILLIGRAM
     Route: 042
     Dates: start: 20240530, end: 20240530

REACTIONS (4)
  - Bile duct stenosis [Fatal]
  - Rectal cancer [Fatal]
  - General physical health deterioration [Unknown]
  - Hypoxia [Unknown]

NARRATIVE: CASE EVENT DATE: 20240613
